FAERS Safety Report 13414820 (Version 1)
Quarter: 2017Q2

REPORT INFORMATION
  Report Type: Spontaneous
  Country: US (occurrence: US)
  Receive Date: 20170407
  Receipt Date: 20170407
  Transmission Date: 20170830
  Serious: No
  Sender: FDA-Public Use
  Company Number: US-GLAXOSMITHKLINE-US2017049132

PATIENT
  Age: 61 Year
  Sex: Female

DRUGS (1)
  1. VENTOLIN HFA [Suspect]
     Active Substance: ALBUTEROL SULFATE
     Indication: ASTHMA
     Dosage: 3 PUFF(S), PRN
     Route: 055

REACTIONS (6)
  - Drug ineffective [Recovered/Resolved]
  - Device use error [Unknown]
  - Product cleaning inadequate [Unknown]
  - Drug dose omission [Recovered/Resolved]
  - Accidental underdose [Recovered/Resolved]
  - Inappropriate schedule of drug administration [Unknown]

NARRATIVE: CASE EVENT DATE: 201703
